FAERS Safety Report 4629465-7 (Version None)
Quarter: 2005Q2

REPORT INFORMATION
  Report Type: 
  Country: None (occurrence: None)
  Receive Date: 20050405
  Receipt Date: 20050323
  Transmission Date: 20051028
  Serious: Yes (Hospitalization)
  Sender: FDA-Public Use
  Company Number: 2005049081

PATIENT
  Age: 87 Year
  Sex: Female

DRUGS (11)
  1. SULFASALAZINE [Suspect]
     Indication: MUSCULOSKELETAL PAIN
     Dosage: 1 GRAM (500 MG, 2 IN 1 D), ORAL
     Route: 048
     Dates: start: 20030228, end: 20030319
  2. ZOPICLONE (ZOPICLONE) [Concomitant]
  3. OMEPRAZOLE [Concomitant]
  4. METOPROLOL TARTRATE [Concomitant]
  5. CANDESARTAN CILEXETIL (CANDESARTAN CILEXETIL ) [Concomitant]
  6. ACETAMINOPHEN [Concomitant]
  7. WARFARIN SODIUM [Concomitant]
  8. CYANOCOBALAMIN [Concomitant]
  9. FUROSEMIDE [Concomitant]
  10. CARBOMER (CARBOMER) [Concomitant]
  11. ETIDRONATE DISODIUM (ETIDRONATE SODIUM) [Concomitant]

REACTIONS (4)
  - C-REACTIVE PROTEIN INCREASED [None]
  - FEELING COLD [None]
  - PYREXIA [None]
  - RASH MACULO-PAPULAR [None]
